FAERS Safety Report 4916169-6 (Version None)
Quarter: 2006Q1

REPORT INFORMATION
  Report Type: 
  Country: None (occurrence: None)
  Receive Date: 20060217
  Receipt Date: 20050718
  Transmission Date: 20060701
  Serious: Yes (Hospitalization)
  Sender: FDA-Public Use
  Company Number: US-MERCK-0507USA02805

PATIENT
  Age: 43 Year
  Sex: Female

DRUGS (1)
  1. VIOXX [Suspect]
     Route: 048

REACTIONS (5)
  - ANXIETY [None]
  - CHEST PAIN [None]
  - EPISTAXIS [None]
  - MYOCARDIAL INFARCTION [None]
  - OEDEMA [None]
